FAERS Safety Report 5412295-6 (Version None)
Quarter: 2007Q3

REPORT INFORMATION
  Report Type: 
  Country: None (occurrence: None)
  Receive Date: 20070713
  Receipt Date: 20070522
  Transmission Date: 20080115
  Serious: No
  Sender: FDA-Public Use
  Company Number: 2007SP001918

PATIENT
  Age: 72 Year
  Sex: Female
  Weight: 102.0593 kg

DRUGS (6)
  1. LUNESTA [Suspect]
     Indication: INSOMNIA
     Dosage: 2 MG;HS;ORAL
     Route: 048
     Dates: start: 20070501
  2. SYNTHROID [Concomitant]
  3. NEXIUM [Concomitant]
  4. ATENOLOL [Concomitant]
  5. LISINOPRIL [Concomitant]
  6. TYLENOL [Concomitant]

REACTIONS (1)
  - INSOMNIA [None]
